FAERS Safety Report 14223702 (Version 3)
Quarter: 2018Q2

REPORT INFORMATION
  Report Type: Report from Study
  Country: FR (occurrence: FR)
  Receive Date: 20171125
  Receipt Date: 20180530
  Transmission Date: 20180711
  Serious: Yes (Other)
  Sender: FDA-Public Use
  Company Number: FR-ACCORD-061381

PATIENT
  Age: 66 Year
  Sex: Female

DRUGS (3)
  1. PREDNISONE. [Suspect]
     Active Substance: PREDNISONE
     Indication: IMMUNE-MEDIATED NECROTISING MYOPATHY
     Dates: start: 201304
  2. IMMUNOGLOBULIN IV [Suspect]
     Active Substance: HUMAN IMMUNOGLOBULIN G
     Indication: IMMUNE-MEDIATED NECROTISING MYOPATHY
     Dosage: SECOND IVIG TREATMENT
     Route: 042
     Dates: start: 201506
  3. METHOTREXATE. [Suspect]
     Active Substance: METHOTREXATE
     Indication: IMMUNE-MEDIATED NECROTISING MYOPATHY
     Route: 058
     Dates: start: 2014, end: 201507

REACTIONS (11)
  - Blood disorder [Unknown]
  - Muscle atrophy [None]
  - Rebound effect [Recovering/Resolving]
  - Neutropenia [None]
  - Product use issue [Unknown]
  - Blood creatine phosphokinase increased [Recovering/Resolving]
  - Myopathy [None]
  - Immune-mediated necrotising myopathy [None]
  - Off label use [Unknown]
  - Motor dysfunction [Recovering/Resolving]
  - Muscle necrosis [None]

NARRATIVE: CASE EVENT DATE: 201507
